FAERS Safety Report 4533036-0 (Version None)
Quarter: 2004Q4

REPORT INFORMATION
  Report Type: 
  Country: None (occurrence: None)
  Receive Date: 20041206
  Receipt Date: 20041014
  Transmission Date: 20050328
  Serious: No
  Sender: FDA-Public Use
  Company Number: USA041081173

PATIENT
  Age: 38 Year
  Sex: Male
  Weight: 64 kg

DRUGS (4)
  1. CYMBALTA [Suspect]
     Indication: PAIN
     Dosage: 60 MG/ 1 DAY
     Dates: start: 20041001
  2. CIALIS [Concomitant]
  3. ACETAMINOPHEN AND HYDROCODONE BITARTRATE [Concomitant]
  4. ASPIRIN [Concomitant]

REACTIONS (3)
  - BACK PAIN [None]
  - EYE DISORDER [None]
  - SOMNOLENCE [None]
